FAERS Safety Report 5609798-8 (Version None)
Quarter: 2008Q1

REPORT INFORMATION
  Report Type: 
  Country: None (occurrence: None)
  Receive Date: 20080131
  Receipt Date: 20071029
  Transmission Date: 20080703
  Serious: No
  Sender: FDA-Public Use
  Company Number: US-BAYER-200713520BCC

PATIENT
  Age: 27 Year
  Sex: Male
  Weight: 79 kg

DRUGS (2)
  1. ALEVE COLD AND SINUS [Suspect]
     Indication: SINUS DISORDER
     Dosage: TOTAL DAILY DOSE: 220 MG  UNIT DOSE: 220 MG
     Route: 048
     Dates: start: 20071028
  2. NYQUIL [Suspect]
     Indication: SLEEP DISORDER

REACTIONS (1)
  - ABDOMINAL PAIN UPPER [None]
